FAERS Safety Report 6005849-X (Version None)
Quarter: 2008Q4

REPORT INFORMATION
  Report Type: 
  Country: None (occurrence: None)
  Receive Date: 20081217
  Receipt Date: 20081202
  Transmission Date: 20090506
  Serious: Yes (Death, Other)
  Sender: FDA-Public Use
  Company Number: AT-BAYER-AT-2007-015051

PATIENT
  Age: 70 Year
  Sex: Male

DRUGS (2)
  1. CAMPATH [Suspect]
     Indication: CHRONIC LYMPHOCYTIC LEUKAEMIA
     Dates: start: 20041102
  2. BENDAMUSTINE [Concomitant]
     Indication: MULTIPLE MYELOMA
     Route: 065
     Dates: start: 20060922

REACTIONS (4)
  - MALIGNANT NEOPLASM PROGRESSION [None]
  - MULTIPLE MYELOMA [None]
  - PARAPROTEINAEMIA [None]
  - PNEUMONIA [None]
